FAERS Safety Report 9188950 (Version 4)
Quarter: 2014Q4

REPORT INFORMATION
  Report Type: Report from Study
  Country: US (occurrence: US)
  Receive Date: 20130326
  Receipt Date: 20141023
  Transmission Date: 20150529
  Serious: Yes (Hospitalization)
  Sender: FDA-Public Use
  Company Number: US-BIOGENIDEC-2013BI025609

PATIENT
  Sex: Female

DRUGS (3)
  1. AVONEX [Suspect]
     Active Substance: INTERFERON BETA-1A
     Indication: MULTIPLE SCLEROSIS
     Route: 030
     Dates: start: 20130225
  2. AVONEX [Suspect]
     Active Substance: INTERFERON BETA-1A
     Indication: MULTIPLE SCLEROSIS
     Route: 030
     Dates: start: 20000225, end: 20060101
  3. AVONEX [Suspect]
     Active Substance: INTERFERON BETA-1A
     Indication: MULTIPLE SCLEROSIS
     Route: 030

REACTIONS (20)
  - Arrhythmia [Unknown]
  - Fungal infection [Not Recovered/Not Resolved]
  - Cardiovascular disorder [Not Recovered/Not Resolved]
  - Muscle spasticity [Unknown]
  - Transient ischaemic attack [Recovered/Resolved]
  - Fracture [Not Recovered/Not Resolved]
  - Optic neuritis [Unknown]
  - Incontinence [Not Recovered/Not Resolved]
  - Central nervous system lesion [Unknown]
  - Osteoarthritis [Unknown]
  - Osteoporosis [Unknown]
  - Hallucination [Recovered/Resolved]
  - Multiple sclerosis relapse [Recovered/Resolved]
  - White blood cell count decreased [Recovered/Resolved]
  - Muscular weakness [Not Recovered/Not Resolved]
  - Rash [Recovered/Resolved]
  - Hypotension [Recovered/Resolved]
  - Depression [Unknown]
  - Cardiac failure congestive [Not Recovered/Not Resolved]
  - Muscle spasms [Unknown]

NARRATIVE: CASE EVENT DATE: 2006
